FAERS Safety Report 8132446-2 (Version None)
Quarter: 2012Q1

REPORT INFORMATION
  Report Type: 
  Country: None (occurrence: None)
  Receive Date: 20120207
  Receipt Date: 20120127
  Transmission Date: 20120608
  Serious: Yes (Life-Threatening)
  Sender: FDA-Public Use
  Company Number: 2012MA001478

PATIENT
  Age: 83 Year
  Sex: Female

DRUGS (8)
  1. LEVOTHYROXINE SODIUM [Concomitant]
  2. ALENDRONIC ACID [Concomitant]
  3. HYDROXYCHLOROQUINE SULFATE [Concomitant]
  4. CITALOPRAM HYDROBROMIDE [Suspect]
     Indication: DEPRESSED MOOD
     Dosage: 20 MG;PO
     Route: 048
     Dates: end: 20120102
  5. QUININE SULFATE [Concomitant]
  6. CALCIUM CARBONATE [Concomitant]
  7. PREDNISOLONE [Concomitant]
  8. LANSOPRAZOLE [Concomitant]

REACTIONS (4)
  - PRESYNCOPE [None]
  - UNRESPONSIVE TO STIMULI [None]
  - VENTRICULAR TACHYCARDIA [None]
  - ELECTROCARDIOGRAM QT PROLONGED [None]
